FAERS Safety Report 23064487 (Version 1)
Quarter: 2023Q4

REPORT INFORMATION
  Report Type: Report from Study
  Country: PL (occurrence: PL)
  Receive Date: 20231013
  Receipt Date: 20231013
  Transmission Date: 20240109
  Serious: Yes (Death, Hospitalization, Other)
  Sender: FDA-Public Use
  Company Number: PL-ROCHE-3439036

PATIENT
  Age: 58 Year
  Sex: Male
  Weight: 80 kg

DRUGS (34)
  1. RITUXIMAB [Suspect]
     Active Substance: RITUXIMAB
     Indication: Chronic lymphocytic leukaemia
     Dosage: 1100 UNK, CYCLICAL (EVERY 28 DAYS), ON THE FIRST DAY OF EACH SUBSEQUENT CYCLE
     Route: 042
     Dates: start: 20220729, end: 20221025
  2. RITUXIMAB [Suspect]
     Active Substance: RITUXIMAB
     Dosage: 500 MG/M2, CYCLIC
     Route: 042
     Dates: end: 20221026
  3. RITUXIMAB [Suspect]
     Active Substance: RITUXIMAB
     Dosage: 1100 MG, CYCLICAL (EVERY 28 DAYS) ON THE FIRST DAY OF EACH SUBSEQUENT CYCLE
     Route: 042
  4. RITUXIMAB [Suspect]
     Active Substance: RITUXIMAB
     Dosage: 1100, CYCLICAL; FREQ: 28 DAYS
     Route: 042
     Dates: start: 20220728, end: 20221026
  5. RITUXIMAB [Suspect]
     Active Substance: RITUXIMAB
     Dosage: 818 MG, SINGLE
     Route: 042
     Dates: start: 20220729
  6. RITUXIMAB [Suspect]
     Active Substance: RITUXIMAB
     Route: 042
     Dates: start: 20221025
  7. RITUXIMAB [Suspect]
     Active Substance: RITUXIMAB
     Dosage: UNK
     Route: 042
     Dates: start: 20221026
  8. RITUXIMAB [Suspect]
     Active Substance: RITUXIMAB
     Dosage: 1100, CYCLICAL; FREQ: 28 DAYS
     Route: 042
     Dates: start: 20220728
  9. BENDAMUSTINE [Suspect]
     Active Substance: BENDAMUSTINE
     Indication: Chronic lymphocytic leukaemia
     Dosage: 70 MG/M2 CYCLICAL
     Route: 042
     Dates: start: 20220728, end: 20221026
  10. BENDAMUSTINE [Suspect]
     Active Substance: BENDAMUSTINE
     Dosage: 155 MG, CYCLICAL (EVERY 28 DAYS)
     Route: 042
     Dates: start: 20220729, end: 20221026
  11. BENDAMUSTINE [Suspect]
     Active Substance: BENDAMUSTINE
     Route: 042
     Dates: start: 20221025
  12. BENDAMUSTINE [Suspect]
     Active Substance: BENDAMUSTINE
     Dosage: 70MG/M2, TWO DAYS, EVERY 28 DAYS
     Route: 042
     Dates: start: 20220729
  13. BENDAMUSTINE [Suspect]
     Active Substance: BENDAMUSTINE
     Route: 042
     Dates: start: 20221026
  14. BENDAMUSTINE [Suspect]
     Active Substance: BENDAMUSTINE
     Dosage: 155 MG, CYCLIC (FREQ:28 D;CYCLICAL)
     Route: 042
     Dates: start: 20220729
  15. BENDAMUSTINE [Suspect]
     Active Substance: BENDAMUSTINE
     Dosage: 155 MG, EVERY 28 DAYS, CYCLICAL, DATE OF MOST RECENT DOSE ADMINISTERED PRIOR TO EVENT ONSET WAS 26/O
     Route: 042
     Dates: start: 20220728
  16. PIRTOBRUTINIB [Suspect]
     Active Substance: PIRTOBRUTINIB
     Indication: Chronic lymphocytic leukaemia
     Dosage: 200 MILLIGRAM, QD
     Route: 048
     Dates: start: 20221122, end: 20221219
  17. PIRTOBRUTINIB [Suspect]
     Active Substance: PIRTOBRUTINIB
     Route: 048
     Dates: start: 20221219
  18. PIRTOBRUTINIB [Suspect]
     Active Substance: PIRTOBRUTINIB
     Route: 048
     Dates: start: 20221122
  19. ALLOPURINOL [Concomitant]
     Active Substance: ALLOPURINOL
     Indication: Hyperuricaemia
     Dosage: UNK
     Dates: start: 20221123
  20. FOSFOMYCIN [Concomitant]
     Active Substance: FOSFOMYCIN
     Dosage: UNK
     Dates: start: 20021105
  21. GLYBURIDE [Concomitant]
     Active Substance: GLYBURIDE
     Indication: Diabetes mellitus
  22. GLUCOPHAGE [Concomitant]
     Active Substance: METFORMIN HYDROCHLORIDE
     Indication: Product used for unknown indication
     Dosage: UNK
     Dates: start: 2018
  23. METFORMIN [Concomitant]
     Active Substance: METFORMIN HYDROCHLORIDE
     Dosage: UNK
     Dates: start: 20160229
  24. ACYCLOVIR [Concomitant]
     Active Substance: ACYCLOVIR
     Indication: Product used for unknown indication
     Dosage: UNK
     Dates: start: 2018
  25. MOLNUPIRAVIR [Concomitant]
     Active Substance: MOLNUPIRAVIR
     Indication: Product used for unknown indication
     Dosage: UNK
     Dates: start: 20221104
  26. GLIBETIC (POLAND) [Concomitant]
     Indication: Product used for unknown indication
     Dosage: UNK
     Dates: start: 2020
  27. CILOSTAZOL [Concomitant]
     Active Substance: CILOSTAZOL
     Indication: Product used for unknown indication
  28. CILOZEK [Concomitant]
     Indication: Product used for unknown indication
  29. GLIMEPIRIDE [Concomitant]
     Active Substance: GLIMEPIRIDE
     Indication: Product used for unknown indication
     Dosage: UNK
     Dates: start: 2020
  30. ACYCLOVIR [Concomitant]
     Active Substance: ACYCLOVIR
     Indication: Product used for unknown indication
  31. BISEPTOL [Concomitant]
     Active Substance: SULFAMETHOXAZOLE\TRIMETHOPRIM
     Indication: Product used for unknown indication
     Dosage: UNK
     Dates: start: 2018
  32. GLIPIZIDE [Concomitant]
     Active Substance: GLIPIZIDE
     Indication: Product used for unknown indication
     Dosage: UNK
  33. SULFAMETHOXAZOLE\TRIMETHOPRIM [Concomitant]
     Active Substance: SULFAMETHOXAZOLE\TRIMETHOPRIM
     Indication: Product used for unknown indication
  34. MESALAMINE [Concomitant]
     Active Substance: MESALAMINE
     Indication: Product used for unknown indication
     Dosage: UNK
     Dates: start: 2017

REACTIONS (7)
  - COVID-19 [Recovered/Resolved]
  - Multiple organ dysfunction syndrome [Fatal]
  - Escherichia urinary tract infection [Fatal]
  - Pneumonia [Fatal]
  - Anaemia [Recovered/Resolved]
  - Chronic lymphocytic leukaemia [Not Recovered/Not Resolved]
  - Cardiac arrest [Not Recovered/Not Resolved]

NARRATIVE: CASE EVENT DATE: 20221101
